FAERS Safety Report 6547539-0 (Version None)
Quarter: 2010Q1

REPORT INFORMATION
  Report Type: 
  Country: None (occurrence: None)
  Receive Date: 20100122
  Receipt Date: 20100112
  Transmission Date: 20100710
  Serious: Yes (Other)
  Sender: FDA-Public Use
  Company Number: US-JNJFOC-20100106120

PATIENT
  Sex: Female

DRUGS (2)
  1. EXTRA STRENGTH TYLENOL PM [Suspect]
     Indication: INSOMNIA
  2. EXTRA STRENGTH TYLENOL PM [Suspect]
     Indication: PAIN

REACTIONS (1)
  - DEPENDENCE [None]
